FAERS Safety Report 6708463-3 (Version None)
Quarter: 2010Q2

REPORT INFORMATION
  Report Type: 
  Country: None (occurrence: None)
  Receive Date: 20100503
  Receipt Date: 20090609
  Transmission Date: 20101027
  Serious: No
  Sender: FDA-Public Use
  Company Number: US-ASTRAZENECA-2009UW14797

PATIENT
  Age: 77 Year
  Sex: Female
  Weight: 81.6 kg

DRUGS (6)
  1. NEXIUM [Suspect]
     Route: 048
  2. TIMOPTIC [Concomitant]
  3. BENICAR [Concomitant]
  4. LANOXIN [Concomitant]
  5. COUMADIN [Concomitant]
  6. SOTALOL HCL [Concomitant]

REACTIONS (1)
  - ROSACEA [None]
